FAERS Safety Report 4911324-3 (Version None)
Quarter: 2006Q1

REPORT INFORMATION
  Report Type: 
  Country: None (occurrence: None)
  Receive Date: 20060113
  Receipt Date: 20051109
  Transmission Date: 20060701
  Serious: No
  Sender: FDA-Public Use
  Company Number: 2005SP003915

PATIENT
  Age: 55 Year
  Sex: Male
  Weight: 96.1626 kg

DRUGS (2)
  1. LUNESTA [Suspect]
     Indication: INSOMNIA
     Dosage: 3 MG; HS; ORAL
     Route: 048
     Dates: start: 20051106, end: 20051107
  2. ATORVASTATIN CALCIUM [Concomitant]

REACTIONS (2)
  - DYSPHEMIA [None]
  - THINKING ABNORMAL [None]
